FAERS Safety Report 4535797-3 (Version None)
Quarter: 2004Q4

REPORT INFORMATION
  Report Type: 
  Country: None (occurrence: None)
  Receive Date: 20041223
  Receipt Date: 20040323
  Transmission Date: 20050328
  Serious: No
  Sender: FDA-Public Use
  Company Number: US-GLAXOSMITHKLINE-A0504048A

PATIENT
  Age: 50 Year
  Sex: Female

DRUGS (1)
  1. FLONASE [Suspect]
     Indication: ILL-DEFINED DISORDER
     Dosage: 2SPR PER DAY
     Route: 045
     Dates: start: 20040322, end: 20040322

REACTIONS (1)
  - MIGRAINE [None]
